FAERS Safety Report 8704813 (Version 2)
Quarter: 2013Q4

REPORT INFORMATION
  Report Type: Spontaneous
  Country: US (occurrence: US)
  Receive Date: 20120803
  Receipt Date: 20131105
  Transmission Date: 20140711
  Serious: Yes (Life-Threatening, Hospitalization, Other)
  Sender: FDA-Public Use
  Company Number: US-MERCK-1207USA011033

PATIENT
  Age: 57 Year
  Sex: Male

DRUGS (1)
  1. ZOCOR [Suspect]
     Dosage: 20 MG, HS
     Route: 048

REACTIONS (4)
  - Rhabdomyolysis [Unknown]
  - Drug screen positive [Unknown]
  - Fall [Unknown]
  - Renal failure acute [Unknown]
